FAERS Safety Report 10593481 (Version 2)
Quarter: 2014Q4

REPORT INFORMATION
  Report Type: Spontaneous
  Country: IL (occurrence: IL)
  Receive Date: 20141119
  Receipt Date: 20141126
  Transmission Date: 20150529
  Serious: Yes (Death)
  Sender: FDA-Public Use
  Company Number: IL-009507513-1411ISR006284

PATIENT
  Sex: Female

DRUGS (1)
  1. MK-3475 [Suspect]
     Active Substance: PEMBROLIZUMAB

REACTIONS (1)
  - Death [Fatal]
